FAERS Safety Report 6822352-5 (Version None)
Quarter: 2010Q3

REPORT INFORMATION
  Report Type: 
  Country: None (occurrence: None)
  Receive Date: 20100708
  Receipt Date: 20100624
  Transmission Date: 20110219
  Serious: Yes (Other)
  Sender: FDA-Public Use
  Company Number: PHHY2010US33660

PATIENT
  Sex: Female

DRUGS (7)
  1. TEGRETOL [Suspect]
     Indication: EPILEPSY
     Dosage: UNK
  2. KEPPRA [Concomitant]
     Indication: EPILEPSY
     Dosage: UNK
  3. HYDROCHLOROTHIAZIDE [Concomitant]
     Dosage: UNK
  4. FOSAMAX [Concomitant]
     Dosage: UNK
  5. TYLENOL [Concomitant]
     Dosage: UNK
  6. ARTHRITIS [Concomitant]
     Dosage: UNK
  7. CALCIUM WITH VITAMIN D [Concomitant]
     Dosage: UNK

REACTIONS (18)
  - AREFLEXIA [None]
  - ATAXIA [None]
  - CEREBELLAR SYNDROME [None]
  - CEREBRAL ISCHAEMIA [None]
  - ENCEPHALOMALACIA [None]
  - EYE MOVEMENT DISORDER [None]
  - GAIT DISTURBANCE [None]
  - HEMIANOPIA [None]
  - HYPOAESTHESIA [None]
  - MOVEMENT DISORDER [None]
  - NERVOUS SYSTEM DISORDER [None]
  - NEUROPATHY PERIPHERAL [None]
  - NYSTAGMUS [None]
  - PAIN [None]
  - POLYNEUROPATHY [None]
  - POSITIVE ROMBERGISM [None]
  - SENSORY DISTURBANCE [None]
  - TREMOR [None]
